FAERS Safety Report 8431549-2 (Version None)
Quarter: 2012Q2

REPORT INFORMATION
  Report Type: 
  Country: None (occurrence: None)
  Receive Date: 20120607
  Receipt Date: 20120607
  Transmission Date: 20120825
  Serious: Yes (Hospitalization)
  Sender: FDA-Public Use
  Company Number: None

PATIENT
  Sex: Male
  Weight: 75 kg

DRUGS (8)
  1. CLOZAPINE [Suspect]
     Indication: SCHIZOPHRENIA, PARANOID TYPE
     Dosage: 150 MG BID PO
     Route: 048
     Dates: start: 20090421, end: 20120124
  2. LOVAZA [Concomitant]
  3. TOPICAL TREATMENTS (POVIDONE SOLUTION, POLYSPORIN OINTMENT, HYDROCORTI [Concomitant]
  4. DIVALPROEX SODIUM [Concomitant]
  5. LEVOTHYROXINE SODIUM [Concomitant]
  6. MULTIVITAMIN W/VITAMINS [Concomitant]
  7. CLONAZEPAM [Concomitant]
  8. LACTULOSE [Concomitant]

REACTIONS (3)
  - TYPE 2 DIABETES MELLITUS [None]
  - DEPRESSION [None]
  - DECREASED APPETITE [None]
